FAERS Safety Report 9630890 (Version 2)
Quarter: 2013Q4

REPORT INFORMATION
  Report Type: Spontaneous
  Country: US (occurrence: None)
  Receive Date: 20131016
  Receipt Date: 20131018
  Transmission Date: 20140711
  Serious: Yes (Other)
  Sender: FDA-Public Use
  Company Number: AUR-APL-2013-08446

PATIENT
  Age: 5 Decade
  Sex: Female

DRUGS (2)
  1. FLUCONAZOLE (FLUCONAZOLE) [Suspect]
     Indication: FUNGAEMIA
  2. MICAFUNGIN (MICAFUNGIN) [Suspect]
     Indication: FUNGAEMIA
     Dosage: (100 MG, 1 IN 1 D)

REACTIONS (8)
  - Pyrexia [None]
  - Tachycardia [None]
  - Drug resistance [None]
  - Treatment failure [None]
  - Chills [None]
  - Vomiting [None]
  - Pyelonephritis acute [None]
  - Escherichia test positive [None]
